FAERS Safety Report 13926180 (Version 2)
Quarter: 2017Q3

REPORT INFORMATION
  Report Type: Spontaneous
  Country: FR (occurrence: FR)
  Receive Date: 20170831
  Receipt Date: 20170911
  Transmission Date: 20171127
  Serious: Yes (Hospitalization)
  Sender: FDA-Public Use
  Company Number: FR-PFIZER INC-2017372494

PATIENT
  Age: 43 Year
  Sex: Male

DRUGS (13)
  1. DICLOFENAC [Concomitant]
     Active Substance: DICLOFENAC
     Dosage: UNK
  2. NORMACOL /00086101/ [Concomitant]
     Active Substance: SULFAMETHOXAZOLE\TRIMETHOPRIM
     Dosage: UNK
  3. FRAGMINE [Suspect]
     Active Substance: DALTEPARIN SODIUM
     Indication: THROMBOSIS PROPHYLAXIS
     Dosage: 1 DF, 1X/DAY
     Route: 058
     Dates: start: 20170329, end: 20170421
  4. UMULINE [Concomitant]
     Active Substance: INSULIN HUMAN
     Dosage: UNK
  5. REPAGLINIDE ACCORD [Concomitant]
     Dosage: UNK
  6. IMOVANE [Concomitant]
     Active Substance: ZOPICLONE
     Dosage: UNK
  7. EUPANTOL [Suspect]
     Active Substance: PANTOPRAZOLE SODIUM
     Indication: PROPHYLAXIS AGAINST GASTROINTESTINAL ULCER
     Dosage: 20 MG, 1X/DAY
     Route: 048
     Dates: start: 20170329, end: 20170421
  8. OXYNORMORO [Suspect]
     Active Substance: OXYCODONE
     Indication: ANALGESIC INTERVENTION SUPPORTIVE THERAPY
     Dosage: 10 MG, AS NEEDED
     Route: 048
     Dates: start: 20170329, end: 20170421
  9. MOVICOL [Concomitant]
     Active Substance: POLYETHYLENE GLYCOL 3350\POTASSIUM CHLORIDE\SODIUM BICARBONATE\SODIUM CHLORIDE
     Dosage: UNK
  10. DOLIPRANE [Concomitant]
     Active Substance: ACETAMINOPHEN
     Dosage: UNK
  11. METFORMIN HYDROCHLORIDE. [Concomitant]
     Active Substance: METFORMIN HYDROCHLORIDE
     Dosage: UNK
     Dates: end: 20170910
  12. HUMALOG [Concomitant]
     Active Substance: INSULIN LISPRO
     Dosage: UNK
  13. EDUCTYL [Concomitant]
     Active Substance: POTASSIUM BITARTRATE\SODIUM BICARBONATE
     Dosage: UNK

REACTIONS (1)
  - Neutropenia [Recovered/Resolved]

NARRATIVE: CASE EVENT DATE: 20170421
